FAERS Safety Report 10639633 (Version 4)
Quarter: 2017Q2

REPORT INFORMATION
  Report Type: Spontaneous
  Country: IT (occurrence: IT)
  Receive Date: 20141209
  Receipt Date: 20170406
  Transmission Date: 20170829
  Serious: Yes (Other)
  Sender: FDA-Public Use
  Company Number: IT-UCBSA-2014020822

PATIENT
  Age: 33 Year
  Sex: Female
  Weight: 60 kg

DRUGS (4)
  1. FOLIC ACID. [Concomitant]
     Active Substance: FOLIC ACID
     Indication: PROPHYLAXIS
     Dosage: 5 MG, ONCE DAILY (QD)
     Route: 048
     Dates: start: 20110301
  2. VALPROATE [Concomitant]
     Active Substance: VALPROIC ACID
     Indication: PARTIAL SEIZURES
     Dosage: UNKNOWN DOSE
  3. KEPPRA [Suspect]
     Active Substance: LEVETIRACETAM
     Indication: PARTIAL SEIZURES
     Dosage: 2000 MG/DAY
     Route: 048
     Dates: start: 20110401
  4. INOSITOL [Concomitant]
     Active Substance: INOSITOL
     Indication: PROPHYLAXIS
     Dosage: 1000 MG, ONCE DAILY (QD)
     Route: 048
     Dates: start: 20110301

REACTIONS (3)
  - Pregnancy [Unknown]
  - Abortion spontaneous [Recovered/Resolved]
  - Inappropriate schedule of drug administration [Unknown]

NARRATIVE: CASE EVENT DATE: 20110401
